FAERS Safety Report 16873578 (Version 10)
Quarter: 2020Q4

REPORT INFORMATION
  Report Type: Report from Study
  Country: US (occurrence: US)
  Receive Date: 20191001
  Receipt Date: 20201015
  Transmission Date: 20210113
  Serious: Yes (Other)
  Sender: FDA-Public Use
  Company Number: US-ASTELLAS-2019US038603

PATIENT
  Age: 88 Year
  Sex: Male

DRUGS (14)
  1. ENZALUTAMIDE [Suspect]
     Active Substance: ENZALUTAMIDE
     Route: 048
     Dates: start: 20200220
  2. ENZALUTAMIDE [Suspect]
     Active Substance: ENZALUTAMIDE
     Route: 048
  3. LUPRON [Concomitant]
     Active Substance: LEUPROLIDE ACETATE
     Indication: PRODUCT USED FOR UNKNOWN INDICATION
     Dosage: UNK UNK, TRI-MONTHLY
     Route: 065
  4. ALLOPURINOL. [Concomitant]
     Active Substance: ALLOPURINOL
     Indication: PRODUCT USED FOR UNKNOWN INDICATION
     Route: 048
  5. ENZALUTAMIDE [Suspect]
     Active Substance: ENZALUTAMIDE
     Dosage: (UNSPECIFIED LOWERED DOSE), UNKNOWN FREQ.
     Route: 048
  6. ENZALUTAMIDE [Suspect]
     Active Substance: ENZALUTAMIDE
     Indication: HORMONE-REFRACTORY PROSTATE CANCER
     Dosage: 2 DF, TWICE DAILY (160 MG OUT OF WHICH 2 CAPS IN MORNING AND 2 IN EVENING)
     Route: 048
     Dates: start: 20190730
  7. ENZALUTAMIDE [Suspect]
     Active Substance: ENZALUTAMIDE
     Dosage: ALTERNATING 1 TO 2 CAPSULES, EVERY OTHER DAY
     Route: 048
     Dates: start: 201908, end: 20191003
  8. ENZALUTAMIDE [Suspect]
     Active Substance: ENZALUTAMIDE
     Route: 048
     Dates: start: 20191108
  9. XGEVA [Concomitant]
     Active Substance: DENOSUMAB
     Indication: BONE CANCER
     Dosage: UNK UNK, MONTHLY
     Route: 065
  10. LEVAQUIN [Concomitant]
     Active Substance: LEVOFLOXACIN
     Indication: PRODUCT USED FOR UNKNOWN INDICATION
     Dosage: UNK UNK, UNKNOWN FREQ.
     Route: 065
  11. ENZALUTAMIDE [Suspect]
     Active Substance: ENZALUTAMIDE
     Route: 048
  12. ENZALUTAMIDE [Suspect]
     Active Substance: ENZALUTAMIDE
     Dosage: UNK, OTHER (04 DAYS OF 2 CAPSULES THEN 3 DAYS OF ONE CAPSULE)
     Route: 048
  13. METFORMIN [Concomitant]
     Active Substance: METFORMIN HYDROCHLORIDE
     Indication: PRODUCT USED FOR UNKNOWN INDICATION
     Route: 048
  14. LEVOTHYROXINE. [Concomitant]
     Active Substance: LEVOTHYROXINE
     Indication: PRODUCT USED FOR UNKNOWN INDICATION
     Route: 065

REACTIONS (18)
  - Deafness [Unknown]
  - Limb discomfort [Unknown]
  - Somnolence [Unknown]
  - Balance disorder [Unknown]
  - Diabetes mellitus [Unknown]
  - Hepatic function abnormal [Unknown]
  - Malignant neoplasm progression [Unknown]
  - Amnesia [Unknown]
  - Intentional product use issue [Unknown]
  - Aspartate aminotransferase increased [Recovering/Resolving]
  - Asthenia [Unknown]
  - Renal impairment [Unknown]
  - Urinary tract disorder [Unknown]
  - Alanine aminotransferase increased [Recovering/Resolving]
  - Condition aggravated [Unknown]
  - Mobility decreased [Unknown]
  - Fatigue [Unknown]
  - Arthralgia [Unknown]

NARRATIVE: CASE EVENT DATE: 201908
